FAERS Safety Report 11090376 (Version 1)
Quarter: 2015Q2

REPORT INFORMATION
  Report Type: Spontaneous
  Country: US (occurrence: None)
  Receive Date: 20150504
  Receipt Date: 20150504
  Transmission Date: 20150821
  Serious: Yes (Hospitalization)
  Sender: FDA-Public Use
  Company Number: None

PATIENT
  Age: 72 Year
  Sex: Female
  Weight: 67.13 kg

DRUGS (1)
  1. HALCION [Suspect]
     Active Substance: TRIAZOLAM
     Indication: CATARACT OPERATION
     Dosage: TAKEN BY MOUTH
     Route: 048

REACTIONS (11)
  - Vomiting [None]
  - Feeling abnormal [None]
  - Gait disturbance [None]
  - Nausea [None]
  - Asthenia [None]
  - Balance disorder [None]
  - Dizziness [None]
  - Retching [None]
  - Vertigo [None]
  - No therapeutic response [None]
  - Fatigue [None]

NARRATIVE: CASE EVENT DATE: 20150423
